FAERS Safety Report 10467585 (Version 1)
Quarter: 2014Q3

REPORT INFORMATION
  Report Type: Spontaneous
  Country: FR (occurrence: FR)
  Receive Date: 20140922
  Receipt Date: 20140922
  Transmission Date: 20150326
  Serious: Yes (Hospitalization)
  Sender: FDA-Public Use
  Company Number: FR-GILEAD-2014-0115529

PATIENT
  Age: 37 Year
  Sex: Male

DRUGS (10)
  1. TRUVADA [Suspect]
     Active Substance: EMTRICITABINE\TENOFOVIR DISOPROXIL FUMARATE
     Dosage: 1 DF, QOD
     Route: 048
     Dates: start: 20130206
  2. ADIAZINE [Suspect]
     Active Substance: SULFADIAZINE
     Indication: CEREBRAL TOXOPLASMOSIS
     Dosage: 6000 MG, UNK
     Route: 048
     Dates: start: 20121229
  3. MALOCIDE                           /00112501/ [Suspect]
     Active Substance: PYRIMETHAMINE
     Dosage: 0.5 UNK, UNK
     Route: 048
     Dates: start: 20130201
  4. NORVIR [Suspect]
     Active Substance: RITONAVIR
     Indication: ACQUIRED IMMUNODEFICIENCY SYNDROME
     Dosage: 200 MG, UNK
     Route: 048
     Dates: start: 20130108
  5. LEDERFOLINE [Concomitant]
     Active Substance: LEUCOVORIN CALCIUM
     Dosage: UNK
  6. MALOCIDE                           /00112501/ [Suspect]
     Active Substance: PYRIMETHAMINE
     Dosage: 1 DF, TID
     Route: 048
     Dates: start: 20130116, end: 20130201
  7. TRUVADA [Suspect]
     Active Substance: EMTRICITABINE\TENOFOVIR DISOPROXIL FUMARATE
     Indication: ACQUIRED IMMUNODEFICIENCY SYNDROME
     Dosage: 1 DF, QD
     Route: 048
     Dates: start: 20130108, end: 20130206
  8. MALOCIDE                           /00112501/ [Suspect]
     Active Substance: PYRIMETHAMINE
     Indication: CEREBRAL TOXOPLASMOSIS
     Dosage: 1.5 DF, QD
     Route: 048
     Dates: start: 20121229
  9. PREZISTA [Suspect]
     Active Substance: DARUNAVIR ETHANOLATE
     Indication: ACQUIRED IMMUNODEFICIENCY SYNDROME
     Dosage: 1200 MG, UNK
     Route: 048
     Dates: start: 20130108
  10. KEPPRA [Suspect]
     Active Substance: LEVETIRACETAM
     Indication: EPILEPSY
     Dosage: 2 G, UNK
     Route: 048
     Dates: start: 20121229

REACTIONS (2)
  - Neutropenia [Recovered/Resolved]
  - Creatinine renal clearance decreased [Recovered/Resolved]

NARRATIVE: CASE EVENT DATE: 20130201
